FAERS Safety Report 6698994-7 (Version None)
Quarter: 2010Q2

REPORT INFORMATION
  Report Type: 
  Country: None (occurrence: None)
  Receive Date: 20100427
  Receipt Date: 20100317
  Transmission Date: 20101027
  Serious: Yes (Other)
  Sender: FDA-Public Use
  Company Number: US-BAYER-201018176NA

PATIENT
  Age: 59 Year
  Sex: Male
  Weight: 118 kg

DRUGS (26)
  1. MAGNEVIST [Suspect]
     Indication: FISTULOGRAM
     Dosage: TOTAL DAILY DOSE: 20 ML
     Dates: start: 20031006, end: 20031006
  2. OMNISCAN [Suspect]
     Indication: VENOGRAM
     Dosage: AS USED: 70 ML
     Dates: start: 20030226, end: 20030226
  3. UNSPECIFIED GADOLINIUM [Suspect]
     Indication: ANGIOGRAM
     Route: 042
     Dates: start: 20010209, end: 20010209
  4. UNSPECIFIED GADOLINIUM [Suspect]
     Dates: start: 20040123, end: 20040123
  5. UNSPECIFIED GADOLINIUM [Suspect]
     Dates: start: 20050628, end: 20050628
  6. GLIPIZIDE [Concomitant]
  7. INSULIN [Concomitant]
  8. NEPHROVITE [Concomitant]
  9. CALCIUM ACETATE [Concomitant]
  10. METOPROLOL [Concomitant]
  11. SYNTHROID [Concomitant]
  12. SEVELAMER [Concomitant]
  13. FERROUS SULFATE TAB [Concomitant]
  14. TERAZOSIN HCL [Concomitant]
  15. FOLIC ACID [Concomitant]
  16. ASPIRIN [Concomitant]
  17. IV IRON [Concomitant]
  18. EPO [Concomitant]
  19. IRBESARTAN [Concomitant]
  20. CLONIDINE [Concomitant]
  21. HYDRALAZINE HCL [Concomitant]
  22. FELODIPINE [Concomitant]
  23. LASIX [Concomitant]
  24. VISIPAQUE 320 [Concomitant]
     Indication: VENOGRAM
     Dates: start: 20030226, end: 20030226
  25. VISIPAQUE [Concomitant]
     Indication: FISTULOGRAM
     Dates: start: 20031006, end: 20031006
  26. DOVONEX [Concomitant]
     Route: 061

REACTIONS (19)
  - BLISTER [None]
  - BLOOD CREATININE INCREASED [None]
  - BURNING SENSATION [None]
  - CONTRAST MEDIA REACTION [None]
  - ERYTHEMA [None]
  - JOINT RANGE OF MOTION DECREASED [None]
  - JOINT STIFFNESS [None]
  - MUSCLE CONTRACTURE [None]
  - NEPHROGENIC SYSTEMIC FIBROSIS [None]
  - OEDEMA PERIPHERAL [None]
  - RASH PAPULAR [None]
  - RENAL FAILURE [None]
  - SKIN DISCOLOURATION [None]
  - SKIN DISORDER [None]
  - SKIN EXFOLIATION [None]
  - SKIN HYPERTROPHY [None]
  - SKIN INDURATION [None]
  - SKIN PLAQUE [None]
  - SKIN TIGHTNESS [None]
